FAERS Safety Report 8765982 (Version 2)
Quarter: 2013Q1

REPORT INFORMATION
  Report Type: Spontaneous
  Country: FR (occurrence: FR)
  Receive Date: 20120904
  Receipt Date: 20130116
  Transmission Date: 20140127
  Serious: Yes (Hospitalization)
  Sender: FDA-Public Use
  Company Number: FR-009507513-1208FRA010290

PATIENT
  Age: 67 Year
  Sex: Female

DRUGS (8)
  1. VICTRELIS [Suspect]
     Indication: PRODUCT USED FOR UNKNOWN INDICATION
     Dosage: 2400 MG, QD
     Route: 048
     Dates: start: 20111010, end: 20120521
  2. PEGASYS [Suspect]
     Indication: PRODUCT USED FOR UNKNOWN INDICATION
     Dosage: 135 MICROGRAM, QW
     Route: 058
     Dates: start: 20110916, end: 20120529
  3. COPEGUS [Suspect]
     Indication: PRODUCT USED FOR UNKNOWN INDICATION
     Dosage: 600 MG, QD
     Route: 048
     Dates: start: 20110916, end: 20120529
  4. NEORECORMON [Suspect]
     Indication: PRODUCT USED FOR UNKNOWN INDICATION
     Dosage: 60000 IU, QW
     Route: 058
     Dates: start: 20110916, end: 20120529
  5. NEUPOGEN [Suspect]
     Indication: PRODUCT USED FOR UNKNOWN INDICATION
     Dosage: 60 MILLION IU, QW
     Route: 058
     Dates: start: 20110916, end: 20120529
  6. REVOLADE [Suspect]
     Indication: PRODUCT USED FOR UNKNOWN INDICATION
     Dosage: 50 MG, QD
     Route: 048
     Dates: start: 20120315, end: 20120514
  7. REVOLADE [Suspect]
     Dosage: 75 MG, QD
     Dates: start: 20120514, end: 20120521
  8. REVOLADE [Suspect]
     Dosage: 50 MG, QD
     Dates: start: 20120521, end: 20120529

REACTIONS (3)
  - Pulmonary hypertensive crisis [Recovered/Resolved]
  - Oedema peripheral [Recovered/Resolved]
  - Dyspepsia [Unknown]
